FAERS Safety Report 8990811 (Version 1)
Quarter: 2012Q4

REPORT INFORMATION
  Report Type: Spontaneous
  Country: US (occurrence: None)
  Receive Date: 20121226
  Receipt Date: 20121226
  Transmission Date: 20130627
  Serious: No
  Sender: FDA-Public Use
  Company Number: None

PATIENT
  Sex: Female

DRUGS (2)
  1. VELCADE MILLENNIUM [Suspect]
     Indication: MULTIPLE MYELOMA
     Dosage: 2x week for 4 mos IV
     Route: 042
  2. NEURONTIN [Suspect]
     Indication: NEUROPATHY

REACTIONS (2)
  - Neuropathy peripheral [None]
  - Drug ineffective [None]
